FAERS Safety Report 9612642 (Version 3)
Quarter: 2013Q4

REPORT INFORMATION
  Report Type: Spontaneous
  Country: FR (occurrence: FR)
  Receive Date: 20131010
  Receipt Date: 20131105
  Transmission Date: 20140711
  Serious: Yes (Other)
  Sender: FDA-Public Use
  Company Number: FR-PFIZER INC-2013284868

PATIENT
  Sex: Female

DRUGS (4)
  1. ALDACTONE [Suspect]
     Dosage: 25 MG, UNK
     Route: 048
     Dates: start: 20130726, end: 20130726
  2. AMIODARONE HCL [Suspect]
     Dosage: UNK
     Route: 065
     Dates: start: 20130726, end: 20130726
  3. BI-TILDIEM [Suspect]
     Dosage: 90 MG, UNK
     Route: 048
     Dates: start: 20130726, end: 20130726
  4. PREVISCAN [Suspect]
     Dosage: 20 MG, UNK
     Route: 048
     Dates: start: 20130726, end: 20130726

REACTIONS (2)
  - Wrong drug administered [Unknown]
  - Bradycardia [Unknown]
